FAERS Safety Report 15275561 (Version 1)
Quarter: 2018Q4

REPORT INFORMATION
  Report Type: Spontaneous
  Country: US (occurrence: US)
  Receive Date: 20180814
  Receipt Date: 20180814
  Transmission Date: 20190204
  Serious: No
  Sender: FDA-Public Use
  Company Number: US-PFIZER INC-2018321893

PATIENT
  Age: 56 Year
  Sex: Male

DRUGS (5)
  1. CODEINE [Suspect]
     Active Substance: CODEINE
     Dosage: UNK
  2. ADALIMUMAB [Suspect]
     Active Substance: ADALIMUMAB
     Dosage: UNK
  3. SULFAMETHOXAZOLE/TRIMETHOPRIM [Suspect]
     Active Substance: SULFAMETHOXAZOLE\TRIMETHOPRIM
     Dosage: UNK
  4. PAROXETINE. [Suspect]
     Active Substance: PAROXETINE
     Dosage: UNK
  5. SECUKINUMAB. [Suspect]
     Active Substance: SECUKINUMAB
     Dosage: UNK

REACTIONS (1)
  - Drug hypersensitivity [Unknown]
